FAERS Safety Report 7463130-6 (Version None)
Quarter: 2011Q2

REPORT INFORMATION
  Report Type: 
  Country: None (occurrence: None)
  Receive Date: 20110506
  Receipt Date: 20110427
  Transmission Date: 20111010
  Serious: Yes (Other)
  Sender: FDA-Public Use
  Company Number: US-ROCHE-747596

PATIENT
  Sex: Female
  Weight: 63.5 kg

DRUGS (2)
  1. ACCUTANE [Suspect]
     Indication: ACNE
     Route: 065
     Dates: start: 20011001, end: 20021128
  2. CLONAZEPAM [Concomitant]

REACTIONS (6)
  - INTESTINAL OBSTRUCTION [None]
  - INFLAMMATORY BOWEL DISEASE [None]
  - DEPRESSION [None]
  - IRRITABLE BOWEL SYNDROME [None]
  - CROHN'S DISEASE [None]
  - GASTROINTESTINAL INJURY [None]
